FAERS Safety Report 25128012 (Version 2)
Quarter: 2025Q2

REPORT INFORMATION
  Report Type: Spontaneous
  Country: US (occurrence: US)
  Receive Date: 20250327
  Receipt Date: 20250508
  Transmission Date: 20250716
  Serious: No
  Sender: ELI LILLY AND COMPANY
  Company Number: US-ELI_LILLY_AND_COMPANY-US202503017805

PATIENT
  Age: 55 Year
  Sex: Female

DRUGS (4)
  1. VERZENIO [Suspect]
     Active Substance: ABEMACICLIB
     Indication: Breast cancer female
     Dosage: 1 DOSAGE FORM, BID
     Route: 048
     Dates: start: 20250318
  2. VERZENIO [Suspect]
     Active Substance: ABEMACICLIB
     Route: 048
  3. IMURAN [Suspect]
     Active Substance: AZATHIOPRINE
     Indication: Irritable bowel syndrome
  4. SEMAGLUTIDE [Concomitant]
     Active Substance: SEMAGLUTIDE
     Indication: Weight control

REACTIONS (2)
  - Hepatic enzyme increased [Not Recovered/Not Resolved]
  - Diarrhoea [Unknown]

NARRATIVE: CASE EVENT DATE: 20250502
